FAERS Safety Report 4436623-3 (Version None)
Quarter: 2004Q3

REPORT INFORMATION
  Report Type: 
  Country: None (occurrence: None)
  Receive Date: 20040830
  Receipt Date: 20040721
  Transmission Date: 20050211
  Serious: No
  Sender: FDA-Public Use
  Company Number: US-BRISTOL-MYERS SQUIBB COMPANY-12647251

PATIENT
  Age: 60 Year
  Sex: Female
  Weight: 52 kg

DRUGS (4)
  1. ABILIFY [Suspect]
     Indication: BIPOLAR DISORDER
     Dosage: DOSE FOR THE LAST 1 1/2 MONTHS IS 10 MG/DAY
     Route: 048
  2. PROZAC [Concomitant]
  3. LEXAPRO [Concomitant]
  4. SYNTHROID [Concomitant]

REACTIONS (1)
  - DEPRESSED MOOD [None]
